FAERS Safety Report 8274252-4 (Version None)
Quarter: 2012Q2

REPORT INFORMATION
  Report Type: 
  Country: None (occurrence: None)
  Receive Date: 20120411
  Receipt Date: 20120411
  Transmission Date: 20120825
  Serious: Yes (Other)
  Sender: FDA-Public Use
  Company Number: None

PATIENT
  Sex: Male
  Weight: 56.7 kg

DRUGS (2)
  1. PRECEDEX [Suspect]
     Indication: HYPOTENSION
     Dosage: 200MCG
     Route: 041
     Dates: start: 20120403, end: 20120403
  2. DDAVP [Concomitant]
     Indication: HYPOTENSION
     Dosage: 20MCG
     Route: 041
     Dates: start: 20120403, end: 20120403

REACTIONS (3)
  - DRUG DISPENSING ERROR [None]
  - PRODUCT OUTER PACKAGING ISSUE [None]
  - WRONG DRUG ADMINISTERED [None]
